FAERS Safety Report 19115637 (Version 1)
Quarter: 2021Q2

REPORT INFORMATION
  Report Type: Report from Study
  Country: None (occurrence: CA)
  Receive Date: 20210409
  Receipt Date: 20210409
  Transmission Date: 20210717
  Serious: Yes (Other)
  Sender: FDA-Public Use
  Company Number: CA-ABBVIE-21K-028-3850075-00

PATIENT
  Age: 46 Year
  Sex: Female

DRUGS (1)
  1. HUMIRA [Suspect]
     Active Substance: ADALIMUMAB
     Indication: HIDRADENITIS
     Route: 058
     Dates: start: 20201218

REACTIONS (3)
  - Vascular rupture [Not Recovered/Not Resolved]
  - Contusion [Not Recovered/Not Resolved]
  - Superficial vein prominence [Not Recovered/Not Resolved]

NARRATIVE: CASE EVENT DATE: 20210402
